FAERS Safety Report 5213427-5 (Version None)
Quarter: 2007Q1

REPORT INFORMATION
  Report Type: 
  Country: None (occurrence: None)
  Receive Date: 20070116
  Receipt Date: 20070109
  Transmission Date: 20070707
  Serious: Yes (Life-Threatening, Hospitalization)
  Sender: FDA-Public Use
  Company Number: FRWYE080409JAN07

PATIENT
  Age: 38 Year
  Sex: Female

DRUGS (5)
  1. LEVONORGESTREL AND ETHINYL ESTRADIOL [Suspect]
     Indication: CONTRACEPTION
     Dosage: 1 TABLET 1X PER 1 DAY
     Route: 048
     Dates: start: 20060901, end: 20060921
  2. LEVOTHYROXINE SODIUM [Concomitant]
  3. SOLUPRED (PREDNISOLONE SODIUM SULFOBENZOLATE) [Concomitant]
  4. MOPRAL (OMEPRAZOLE) [Concomitant]
  5. ATORVASTATIN CALCIUM [Concomitant]

REACTIONS (10)
  - HAEMORRHAGIC STROKE [None]
  - HEADACHE [None]
  - HYPERCHOLESTEROLAEMIA [None]
  - HYPERHOMOCYSTEINAEMIA [None]
  - HYPERTHERMIA [None]
  - ISCHAEMIC STROKE [None]
  - LIPOPROTEIN (A) INCREASED [None]
  - TREMOR [None]
  - VITAMIN B12 DEFICIENCY [None]
  - VOMITING [None]
